FAERS Safety Report 4836960-4 (Version None)
Quarter: 2005Q4

REPORT INFORMATION
  Report Type: 
  Country: None (occurrence: None)
  Receive Date: 20051123
  Receipt Date: 20050929
  Transmission Date: 20060501
  Serious: Yes (Hospitalization, Disabling)
  Sender: FDA-Public Use
  Company Number: US-MERCK-0510USA00339

PATIENT
  Age: 57 Year
  Sex: Female
  Weight: 73 kg

DRUGS (27)
  1. VIOXX [Suspect]
     Indication: CARPAL TUNNEL SYNDROME
     Route: 048
     Dates: start: 19990101, end: 20030101
  2. ACETAMINOPHEN AND CODEINE [Concomitant]
     Route: 065
  3. BENADRYL [Concomitant]
     Route: 065
  4. CELEBREX [Concomitant]
     Route: 065
  5. DARVOCET-N 100 [Concomitant]
     Route: 065
  6. FIORINAL [Concomitant]
     Route: 065
  7. ACETAMINOPHEN AND HYDROCODONE BITARTRATE [Concomitant]
     Route: 065
  8. KEFLEX [Concomitant]
     Route: 065
  9. MIDRIN [Concomitant]
     Route: 065
  10. MOTRIN [Concomitant]
     Route: 065
  11. NAPROXEN [Concomitant]
     Route: 065
  12. PREMPRO [Concomitant]
     Route: 065
  13. PREMARIN [Concomitant]
     Route: 065
  14. PROVERA [Concomitant]
     Route: 065
  15. VITAMIN B COMPLEX [Concomitant]
     Route: 065
  16. PRILOSEC [Concomitant]
     Route: 065
  17. DONNATAL [Concomitant]
     Route: 065
  18. BUSPAR [Concomitant]
     Route: 065
  19. VICODIN [Concomitant]
     Route: 065
  20. ANTIVERT [Concomitant]
     Route: 065
  21. ELAVIL [Concomitant]
     Route: 065
  22. PENICILLIN (UNSPECIFIED) [Concomitant]
     Route: 065
  23. CALAN [Concomitant]
     Route: 065
  24. NITROSTAT [Concomitant]
     Route: 065
  25. PEPCID [Concomitant]
     Route: 065
  26. VERAPAMIL [Concomitant]
     Route: 065
  27. REMERON [Concomitant]
     Route: 065

REACTIONS (26)
  - ANGINA PECTORIS [None]
  - ANGINA UNSTABLE [None]
  - ARTERIOSCLEROSIS [None]
  - BRADYCARDIA [None]
  - CAROTID ARTERY STENOSIS [None]
  - CEREBRAL ATROPHY [None]
  - CEREBROVASCULAR ACCIDENT [None]
  - CHEST PAIN [None]
  - CORONARY ARTERY DISEASE [None]
  - DILATATION ATRIAL [None]
  - DIZZINESS [None]
  - DRUG INTOLERANCE [None]
  - GLOBULINS INCREASED [None]
  - HEADACHE [None]
  - HYPERCHOLESTEROLAEMIA [None]
  - HYPERTENSION [None]
  - HYPERTENSIVE HEART DISEASE [None]
  - HYPOALBUMINAEMIA [None]
  - HYPOTENSION [None]
  - ISCHAEMIA [None]
  - MITRAL VALVE INCOMPETENCE [None]
  - MYOCARDIAL INFARCTION [None]
  - NICOTINE DEPENDENCE [None]
  - PULMONARY HYPERTENSION [None]
  - TRICUSPID VALVE INCOMPETENCE [None]
  - VENTRICULAR HYPERTROPHY [None]
